FAERS Safety Report 5317257-5 (Version None)
Quarter: 2007Q2

REPORT INFORMATION
  Report Type: 
  Country: None (occurrence: None)
  Receive Date: 20070504
  Receipt Date: 20070426
  Transmission Date: 20071010
  Serious: Yes (Hospitalization, Disabling)
  Sender: FDA-Public Use
  Company Number: US-ABBOTT-07P-163-0366418-00

PATIENT
  Sex: Female
  Weight: 3.746 kg

DRUGS (1)
  1. HUMIRA [Suspect]
     Indication: DRUG EXPOSURE DURING PREGNANCY

REACTIONS (4)
  - BLINDNESS [None]
  - BRADYCARDIA NEONATAL [None]
  - GASTROOESOPHAGEAL REFLUX DISEASE [None]
  - INFANTILE APNOEIC ATTACK [None]
